FAERS Safety Report 8456400-6 (Version None)
Quarter: 2012Q2

REPORT INFORMATION
  Report Type: 
  Country: None (occurrence: None)
  Receive Date: 20120621
  Receipt Date: 20120613
  Transmission Date: 20120825
  Serious: No
  Sender: FDA-Public Use
  Company Number: US-B.I. PHARMACEUTICALS,INC./RIDGEFIELD-2012-BP-13881PF

PATIENT

DRUGS (6)
  1. SPIRIVA [Suspect]
  2. COMBIVENT [Suspect]
  3. DULERA [Suspect]
  4. SINGULAIR [Suspect]
  5. ADVAIR DISKUS 100/50 [Suspect]
  6. XOPENEX [Suspect]

REACTIONS (1)
  - WHEEZING [None]
